FAERS Safety Report 11628898 (Version 1)
Quarter: 2015Q4

REPORT INFORMATION
  Report Type: Spontaneous
  Country: US (occurrence: None)
  Receive Date: 20151013
  Receipt Date: 20151013
  Transmission Date: 20160304
  Serious: No
  Sender: FDA-Public Use
  Company Number: None

PATIENT
  Age: 53 Year
  Sex: Male
  Weight: 97.5 kg

DRUGS (1)
  1. TAPENTADOL [Suspect]
     Active Substance: TAPENTADOL
     Indication: PAIN
     Route: 048
     Dates: start: 20150724, end: 20150727

REACTIONS (6)
  - Urticaria [None]
  - Headache [None]
  - Swelling face [None]
  - Pruritus [None]
  - Rash [None]
  - Dyspnoea [None]

NARRATIVE: CASE EVENT DATE: 20150724
